FAERS Safety Report 14612114 (Version 1)
Quarter: 2018Q1

REPORT INFORMATION
  Report Type: Spontaneous
  Country: CN (occurrence: CN)
  Receive Date: 20180308
  Receipt Date: 20180308
  Transmission Date: 20180509
  Serious: Yes (Other)
  Sender: FDA-Public Use
  Company Number: PHHY2018CN032730

PATIENT
  Age: 8 Year
  Sex: Female

DRUGS (1)
  1. METHOTREXATE. [Suspect]
     Active Substance: METHOTREXATE
     Indication: ACUTE LYMPHOCYTIC LEUKAEMIA
     Dosage: 5 G/M2, UNK
     Route: 042

REACTIONS (8)
  - Abdominal pain [Unknown]
  - Vomiting [Unknown]
  - Loss of consciousness [Recovered/Resolved]
  - Staring [Unknown]
  - Secondary hypertension [Unknown]
  - Epilepsy [Recovered/Resolved]
  - Seizure [Unknown]
  - Electrolyte imbalance [Unknown]
